FAERS Safety Report 7420605-3 (Version None)
Quarter: 2011Q2

REPORT INFORMATION
  Report Type: 
  Country: None (occurrence: None)
  Receive Date: 20110418
  Receipt Date: 20110228
  Transmission Date: 20111010
  Serious: Yes (Hospitalization, Other)
  Sender: FDA-Public Use
  Company Number: US-PFIZER INC-2011043450

PATIENT
  Age: 48 Year
  Sex: Female

DRUGS (2)
  1. XYLOCAINE [Suspect]
     Indication: PAIN
     Dosage: UNK
  2. DEPO-MEDROL [Suspect]
     Indication: ARTHRALGIA
     Dosage: UNK MG/ML, UNK
     Dates: end: 20110223

REACTIONS (1)
  - BACTERIAL INFECTION [None]
